FAERS Safety Report 25936675 (Version 1)
Quarter: 2025Q4

REPORT INFORMATION
  Report Type: Spontaneous
  Country: EU (occurrence: EU)
  Receive Date: 20251017
  Receipt Date: 20251017
  Transmission Date: 20260118
  Serious: Yes (Hospitalization, Other)
  Sender: ABBVIE
  Company Number: EU-ABBVIE-6503303

PATIENT
  Age: 68 Year
  Sex: Female

DRUGS (10)
  1. VENETOCLAX [Suspect]
     Active Substance: VENETOCLAX
     Indication: Acute myeloid leukaemia
     Dosage: 4 TABLET?CYCLE 3
     Route: 048
     Dates: start: 20250721, end: 20250725
  2. VENETOCLAX [Suspect]
     Active Substance: VENETOCLAX
     Indication: Acute myeloid leukaemia
     Dosage: 2 TABLET
     Route: 048
  3. VENETOCLAX [Suspect]
     Active Substance: VENETOCLAX
     Indication: Acute myeloid leukaemia
     Dosage: 4 TABLET, LAST ADMIN 2025?CYCLE 2
     Route: 048
     Dates: start: 202506
  4. VENETOCLAX [Suspect]
     Active Substance: VENETOCLAX
     Indication: Acute myeloid leukaemia
     Dosage: 400 MILLIGRAM, LAST ADMIN 2025?CYCLE 1
     Route: 048
     Dates: start: 202505
  5. ENOXAPARIN SODIUM [Concomitant]
     Active Substance: ENOXAPARIN SODIUM
     Indication: Prophylaxis
  6. DECITABINE [Concomitant]
     Active Substance: DECITABINE
     Indication: Acute myeloid leukaemia
     Dosage: 40 MILLIGRAM
     Dates: start: 20250721, end: 20250725
  7. DECITABINE [Concomitant]
     Active Substance: DECITABINE
     Indication: Acute myeloid leukaemia
     Dosage: 40 MILLIGRAM
     Dates: start: 202505
  8. DECITABINE [Concomitant]
     Active Substance: DECITABINE
     Indication: Acute myeloid leukaemia
     Dates: start: 202506
  9. COTRIMOXAZOLE [Concomitant]
     Active Substance: SULFAMETHOXAZOLE\TRIMETHOPRIM
     Indication: Product used for unknown indication
     Dosage: 2 TABLETS
  10. ACYCLOVIR [Concomitant]
     Active Substance: ACYCLOVIR
     Indication: Product used for unknown indication
     Dosage: 2 TABLETS

REACTIONS (20)
  - Oedema [Unknown]
  - Escherichia test positive [Recovered/Resolved]
  - Escherichia test positive [Recovered/Resolved]
  - Pyrexia [Recovered/Resolved]
  - Oliguria [Unknown]
  - Swelling face [Unknown]
  - Hypercalcaemia [Unknown]
  - Chills [Unknown]
  - Neutropenia [Unknown]
  - Pseudomonas infection [Recovered/Resolved]
  - Dysphagia [Unknown]
  - Hyponatraemia [Unknown]
  - Infected neoplasm [Unknown]
  - Serratia infection [Recovered/Resolved]
  - Dehydration [Unknown]
  - Oedema [Unknown]
  - Septic shock [Unknown]
  - Dysphonia [Unknown]
  - Wound necrosis [Unknown]
  - Dysphagia [Unknown]

NARRATIVE: CASE EVENT DATE: 20250601
